FAERS Safety Report 8796191 (Version 1)
Quarter: 2012Q4

REPORT INFORMATION
  Report Type: 
  Country: BR (occurrence: BR)
  Receive Date: 20120920
  Receipt Date: 20120920
  Transmission Date: 20130627
  Serious: Yes (Other)
  Sender: FDA-Public Use
  Company Number: BR-PFIZER INC-2012231198

PATIENT
  Age: 53 Year
  Sex: Male
  Weight: 52 kg

DRUGS (5)
  1. FRONTAL [Suspect]
     Dosage: 1 mg, UNK
     Dates: start: 2009
  2. FRONTAL [Suspect]
     Indication: AGITATION
     Dosage: 1 mg, in the morning
     Route: 048
     Dates: start: 20120913
  3. FRONTAL [Suspect]
     Indication: CONFUSIONAL STATE
  4. ATENOLOL\CHLORTHALIDONE [Concomitant]
     Indication: HYPERTENSION
     Dosage: 50/12.5mg, UNK
  5. TORSILAX [Concomitant]
     Indication: HEADACHE
     Dosage: UNK, as needed

REACTIONS (7)
  - Schizophrenia [Unknown]
  - Confusional state [Not Recovered/Not Resolved]
  - Mental disorder [Not Recovered/Not Resolved]
  - Abnormal behaviour [Unknown]
  - Agitation [Unknown]
  - Emotional disorder [Unknown]
  - Malaise [Not Recovered/Not Resolved]
